FAERS Safety Report 4628259-6 (Version None)
Quarter: 2005Q2

REPORT INFORMATION
  Report Type: 
  Country: None (occurrence: None)
  Receive Date: 20050404
  Receipt Date: 20050321
  Transmission Date: 20051028
  Serious: Yes (Other)
  Sender: FDA-Public Use
  Company Number: 2005048142

PATIENT
  Age: 20 Year
  Sex: Female

DRUGS (1)
  1. DEPO-PROVERA [Suspect]
     Indication: CONTRACEPTION
     Dosage: 1 ST INJECTION Q/ 12 WEEKS, INTRAMUSCULAR
     Route: 030
     Dates: start: 20030901, end: 20030901

REACTIONS (2)
  - ASTHENIA [None]
  - HYPOAESTHESIA [None]
